FAERS Safety Report 5568375-8 (Version None)
Quarter: 2007Q4

REPORT INFORMATION
  Report Type: 
  Country: None (occurrence: None)
  Receive Date: 20071220
  Receipt Date: 20071210
  Transmission Date: 20080405
  Serious: Yes (Other)
  Sender: FDA-Public Use
  Company Number: US-AMGEN-KDL256229

PATIENT
  Sex: Female

DRUGS (2)
  1. ENBREL [Suspect]
     Indication: RHEUMATOID ARTHRITIS
     Route: 058
     Dates: start: 19981219
  2. METHOTREXATE [Concomitant]
     Route: 065
     Dates: start: 19820101

REACTIONS (3)
  - BLOOD PRESSURE INCREASED [None]
  - CORONARY ARTERY OCCLUSION [None]
  - MEMORY IMPAIRMENT [None]
